FAERS Safety Report 20253879 (Version 2)
Quarter: 2022Q1

REPORT INFORMATION
  Report Type: Report from Study
  Country: CA (occurrence: CA)
  Receive Date: 20211230
  Receipt Date: 20220301
  Transmission Date: 20220423
  Serious: No
  Sender: FDA-Public Use
  Company Number: CA-JNJFOC-20211235912

PATIENT
  Age: 56 Year
  Sex: Female

DRUGS (1)
  1. SIMPONI [Suspect]
     Active Substance: GOLIMUMAB
     Indication: Rheumatoid arthritis
     Dosage: 50.00 MG / 0.50 ML
     Route: 058
     Dates: start: 20211116, end: 20220225

REACTIONS (3)
  - Device issue [Unknown]
  - Product leakage [Unknown]
  - Product dose omission issue [Unknown]
